FAERS Safety Report 16716213 (Version 1)
Quarter: 2019Q3

REPORT INFORMATION
  Report Type: Report from Study
  Country: US (occurrence: US)
  Receive Date: 20190819
  Receipt Date: 20190819
  Transmission Date: 20191005
  Serious: Yes (Hospitalization)
  Sender: FDA-Public Use
  Company Number: US-ACTELION-A-NJ2019-189443

PATIENT
  Age: 35 Year
  Sex: Female

DRUGS (10)
  1. ESTARYLLA [Concomitant]
     Active Substance: ETHINYL ESTRADIOL\NORGESTIMATE
  2. ZOLPIDEM [Concomitant]
     Active Substance: ZOLPIDEM TARTRATE
  3. METFORMIN [Concomitant]
     Active Substance: METFORMIN HYDROCHLORIDE
     Indication: ESSENTIAL HYPERTENSION
  4. NYSTATIN. [Concomitant]
     Active Substance: NYSTATIN
  5. FUROSEMIDE. [Concomitant]
     Active Substance: FUROSEMIDE
  6. OMEPRAZOLE. [Concomitant]
     Active Substance: OMEPRAZOLE
  7. SILDENAFIL. [Concomitant]
     Active Substance: SILDENAFIL
  8. OPSUMIT [Suspect]
     Active Substance: MACITENTAN
     Indication: PULMONARY ARTERIAL HYPERTENSION
     Dosage: 10 MG, QD
     Route: 048
     Dates: start: 20180719
  9. AMLODIPINE [Concomitant]
     Active Substance: AMLODIPINE BESYLATE
  10. POTASSIUM CHLORIDE. [Concomitant]
     Active Substance: POTASSIUM CHLORIDE

REACTIONS (3)
  - Cardiac pacemaker insertion [Unknown]
  - Pulmonary arterial hypertension [Not Recovered/Not Resolved]
  - Malaise [Unknown]

NARRATIVE: CASE EVENT DATE: 201901
